FAERS Safety Report 11980592 (Version 5)
Quarter: 2016Q4

REPORT INFORMATION
  Report Type: Report from Study
  Country: US (occurrence: US)
  Receive Date: 20160129
  Receipt Date: 20161128
  Transmission Date: 20170206
  Serious: Yes (Hospitalization, Other)
  Sender: FDA-Public Use
  Company Number: US-PFIZER INC-2016045490

PATIENT
  Age: 63 Year
  Sex: Female
  Weight: 102.4 kg

DRUGS (12)
  1. SUTENT [Suspect]
     Active Substance: SUNITINIB MALATE
     Dosage: 25 MG, DAILY
     Route: 048
     Dates: start: 20160501
  2. SUTENT [Suspect]
     Active Substance: SUNITINIB MALATE
     Indication: METASTATIC RENAL CELL CARCINOMA
     Dosage: 50 MG, DAILY (4 WEEKS ON / 2 WEEKS OFF)
  3. SUTENT [Suspect]
     Active Substance: SUNITINIB MALATE
     Dosage: UNK (37.5)
     Dates: start: 201605
  4. KLONOPIN [Concomitant]
     Active Substance: CLONAZEPAM
     Dosage: UNK
     Dates: end: 20160201
  5. SUTENT [Suspect]
     Active Substance: SUNITINIB MALATE
     Dosage: 50 MG, DAILY (1 WEEK ON / 1 WEEK OFF)
     Dates: start: 20150501
  6. HYDROCHLOROTHIAZIDE. [Concomitant]
     Active Substance: HYDROCHLOROTHIAZIDE
     Dosage: UNK
     Dates: start: 201505
  7. LEVOTHYROXINE. [Concomitant]
     Active Substance: LEVOTHYROXINE
     Dosage: UNK
  8. COZAAR [Concomitant]
     Active Substance: LOSARTAN POTASSIUM
     Dosage: UNK
     Dates: start: 201505
  9. SUTENT [Suspect]
     Active Substance: SUNITINIB MALATE
     Dosage: 50 MG, DAILY (3 WEEKS ON / 2 WEEKS OFF)
  10. SUTENT [Suspect]
     Active Substance: SUNITINIB MALATE
     Dosage: 50 MG, DAILY (2 WEEKS ON / 1 WEEKS OFF)
  11. SUTENT [Suspect]
     Active Substance: SUNITINIB MALATE
     Dosage: UNK (37.5 1WEEK ON + 1 WEEK OFF )
     Dates: start: 201601
  12. KLONOPIN [Concomitant]
     Active Substance: CLONAZEPAM
     Dosage: UNK (0.1)

REACTIONS (15)
  - Dry mouth [Unknown]
  - Feeling cold [Not Recovered/Not Resolved]
  - Ear infection [Recovered/Resolved]
  - Alopecia [Not Recovered/Not Resolved]
  - Hair colour changes [Unknown]
  - Nausea [Not Recovered/Not Resolved]
  - Hypothyroidism [Not Recovered/Not Resolved]
  - Pain [Unknown]
  - Weight increased [Not Recovered/Not Resolved]
  - Diarrhoea [Unknown]
  - Stomatitis [Recovered/Resolved]
  - Dysgeusia [Unknown]
  - Blister [Not Recovered/Not Resolved]
  - Hypertension [Not Recovered/Not Resolved]
  - Headache [Not Recovered/Not Resolved]

NARRATIVE: CASE EVENT DATE: 201505
